FAERS Safety Report 7629428-3 (Version None)
Quarter: 2011Q3

REPORT INFORMATION
  Report Type: 
  Country: None (occurrence: None)
  Receive Date: 20110722
  Receipt Date: 20110711
  Transmission Date: 20111222
  Serious: Yes (Other)
  Sender: FDA-Public Use
  Company Number: JP-JNJFOC-20110701541

PATIENT
  Sex: Female
  Weight: 65 kg

DRUGS (15)
  1. KETOTEN [Concomitant]
     Indication: SEASONAL ALLERGY
     Dates: start: 20110323
  2. REBAMIPIDE [Concomitant]
     Route: 048
     Dates: start: 20100707
  3. INTEBAN SP [Concomitant]
     Indication: RHEUMATOID ARTHRITIS
     Dates: start: 20100805
  4. METHOTREXATE [Concomitant]
     Indication: RHEUMATOID ARTHRITIS
     Route: 048
  5. PLACEBO [Suspect]
     Indication: RHEUMATOID ARTHRITIS
     Route: 058
     Dates: start: 20080806
  6. CIMETIDINE [Concomitant]
     Route: 048
  7. INTENURSE [Concomitant]
     Indication: BACK PAIN
     Dates: start: 20110511
  8. GOLIMUMAB [Suspect]
     Indication: RHEUMATOID ARTHRITIS
     Route: 058
     Dates: start: 20090121, end: 20110608
  9. ISODINE GARGLE [Concomitant]
     Route: 049
     Dates: start: 20090902
  10. FOLIC ACID [Concomitant]
     Route: 048
  11. TALION [Concomitant]
     Indication: SEASONAL ALLERGY
     Route: 048
     Dates: start: 20110323, end: 20110706
  12. LEVOCABASTINE HYDROCHLORIDE [Concomitant]
     Indication: SEASONAL ALLERGY
     Dates: start: 20110323
  13. RIMATIL [Concomitant]
     Indication: RHEUMATOID ARTHRITIS
     Route: 048
     Dates: start: 20110706
  14. PREDNISOLONE [Concomitant]
     Indication: RHEUMATOID ARTHRITIS
     Route: 048
     Dates: start: 20100415
  15. CRESTOR [Concomitant]
     Indication: HYPERLIPIDAEMIA
     Route: 048
     Dates: start: 20090805

REACTIONS (1)
  - UTERINE CANCER [None]
